FAERS Safety Report 24837955 (Version 1)
Quarter: 2025Q1

REPORT INFORMATION
  Report Type: Spontaneous
  Country: US (occurrence: US)
  Receive Date: 20250113
  Receipt Date: 20250113
  Transmission Date: 20250408
  Serious: Yes (Hospitalization)
  Sender: BOEHRINGER INGELHEIM
  Company Number: US-Komodo Health-a23aa00000571KfAAI

PATIENT
  Age: 65 Year
  Sex: Male

DRUGS (3)
  1. JARDIANCE [Suspect]
     Active Substance: EMPAGLIFLOZIN
     Indication: Cardiac failure
  2. MORPHINE [Concomitant]
     Active Substance: MORPHINE
     Indication: Pain
  3. BACLOFEN [Concomitant]
     Active Substance: BACLOFEN
     Indication: Spinal cord injury

REACTIONS (5)
  - Hallucinations, mixed [Unknown]
  - Amnesia [Unknown]
  - Blood potassium increased [Unknown]
  - Condition aggravated [Unknown]
  - Extra dose administered [Unknown]

NARRATIVE: CASE EVENT DATE: 20240101
